FAERS Safety Report 5835616-9 (Version None)
Quarter: 2008Q3

REPORT INFORMATION
  Report Type: 
  Country: None (occurrence: None)
  Receive Date: 20080806
  Receipt Date: 20080805
  Transmission Date: 20090109
  Serious: Yes (Death, Hospitalization)
  Sender: FDA-Public Use
  Company Number: PHHO1999IT05566

PATIENT
  Sex: Male

DRUGS (5)
  1. RAD 666 RAD+ [Suspect]
     Dosage: 1.5 MG, BID
     Route: 048
     Dates: start: 19990915, end: 19991006
  2. RAD 666 RAD+ [Suspect]
     Dosage: CODE NOT BROKEN
     Route: 048
     Dates: start: 19991006, end: 19991007
  3. NEORAL [Suspect]
     Route: 048
     Dates: start: 19990927
  4. DELTA-CORTEF [Suspect]
  5. AZATHIOPRINE [Suspect]

REACTIONS (4)
  - DEATH [None]
  - HAEMORRHAGE [None]
  - PNEUMONIA [None]
  - THROMBOCYTOPENIA [None]
